FAERS Safety Report 7577922-6 (Version None)
Quarter: 2011Q2

REPORT INFORMATION
  Report Type: 
  Country: None (occurrence: None)
  Receive Date: 20110628
  Receipt Date: 20110622
  Transmission Date: 20111010
  Serious: Yes (Hospitalization)
  Sender: FDA-Public Use
  Company Number: US-B.I. PHARMACEUTICALS,INC./RIDGEFIELD-2011-BP-06527BP

PATIENT
  Sex: Male
  Weight: 107.95 kg

DRUGS (16)
  1. CELEBREX [Concomitant]
  2. OXYCODONE HCL [Concomitant]
  3. LIPITOR [Concomitant]
  4. FLONASE [Concomitant]
  5. PLAVIX [Concomitant]
  6. DURAGESIC-100 [Concomitant]
  7. ASTELIN [Concomitant]
  8. FLUOCINONIDE [Concomitant]
  9. PRADAXA [Suspect]
     Indication: ATRIAL FIBRILLATION
     Dates: start: 20110219
  10. TOPROL-XL [Concomitant]
  11. GABAPENTIN [Concomitant]
     Dosage: 1200 MG
  12. DILTIAZEM HCL [Concomitant]
  13. ALBUTEROL SULFATE AUTOHALER [Concomitant]
  14. ALLOPURINOL [Concomitant]
  15. PROSCAR [Concomitant]
  16. LIDOCAINE [Concomitant]

REACTIONS (3)
  - FEELING ABNORMAL [None]
  - DISTURBANCE IN ATTENTION [None]
  - ANXIETY [None]
